FAERS Safety Report 6959957-7 (Version None)
Quarter: 2010Q3

REPORT INFORMATION
  Report Type: 
  Country: None (occurrence: None)
  Receive Date: 20100901
  Receipt Date: 20100820
  Transmission Date: 20110219
  Serious: Yes (Other)
  Sender: FDA-Public Use
  Company Number: PHHY2010SK55429

PATIENT
  Age: 70 Year
  Sex: Female

DRUGS (1)
  1. ZOLEDRONIC [Suspect]
     Dosage: UNK
     Dates: start: 20100620

REACTIONS (6)
  - COMPRESSION FRACTURE [None]
  - FALL [None]
  - HEADACHE [None]
  - NAUSEA [None]
  - PYREXIA [None]
  - VERTIGO [None]
